FAERS Safety Report 17300678 (Version 1)
Quarter: 2020Q1

REPORT INFORMATION
  Report Type: Spontaneous
  Country: US (occurrence: US)
  Receive Date: 20200122
  Receipt Date: 20200122
  Transmission Date: 20200409
  Serious: No
  Sender: FDA-Public Use
  Company Number: US-ALLERGAN-1950040US

PATIENT
  Age: 88 Year
  Sex: Female

DRUGS (3)
  1. RESTASIS [Suspect]
     Active Substance: CYCLOSPORINE
     Indication: ASTHENOPIA
  2. RESTASIS [Suspect]
     Active Substance: CYCLOSPORINE
     Indication: DRY EYE
     Dosage: 2 GTT, BID
     Route: 047
  3. UNKNOWN ARTIFICIAL TEARS [Concomitant]
     Indication: DRY EYE
     Route: 047

REACTIONS (3)
  - Eye irritation [Not Recovered/Not Resolved]
  - Off label use [Unknown]
  - Ocular discomfort [Not Recovered/Not Resolved]
